FAERS Safety Report 4753624-6 (Version None)
Quarter: 2005Q3

REPORT INFORMATION
  Report Type: 
  Country: None (occurrence: None)
  Receive Date: 20050824
  Receipt Date: 20050816
  Transmission Date: 20060218
  Serious: Yes (Disabling)
  Sender: FDA-Public Use
  Company Number: 213088

PATIENT
  Age: 36 Year
  Sex: Female
  Weight: 110 kg

DRUGS (11)
  1. CATHFLO ACTIVASE [Suspect]
     Indication: CATHETER RELATED COMPLICATION
     Dosage: 4 MG,3/WEEK, INTRAVENOUS
     Route: 042
     Dates: start: 20040827
  2. ARANESP [Concomitant]
  3. CLONAZEPAM [Concomitant]
  4. CALCIUM CARBONATE (CALCUM CARBONATE) [Concomitant]
  5. COLACE (DOCUSATE SODIUM) [Concomitant]
  6. SENOKOT [Concomitant]
  7. PANTOLOC (PANTOPRAZOLE) [Concomitant]
  8. RENAGEL [Concomitant]
  9. COUMADIN [Concomitant]
  10. ONE-ALPHA (ALFACALCIDOL) [Concomitant]
  11. LOPID [Concomitant]

REACTIONS (2)
  - HYPERTHERMIA [None]
  - PYREXIA [None]
